FAERS Safety Report 8919413 (Version 2)
Quarter: 2013Q1

REPORT INFORMATION
  Report Type: Spontaneous
  Country: US (occurrence: US)
  Receive Date: 20121121
  Receipt Date: 20130110
  Transmission Date: 20140127
  Serious: Yes (Other)
  Sender: FDA-Public Use
  Company Number: US-SANOFI-AVENTIS-2012SA082790

PATIENT
  Age: 53 Year
  Sex: Female
  Weight: 82 kg

DRUGS (5)
  1. PLAQUENIL [Suspect]
     Route: 065
  2. CORTISONE [Suspect]
     Route: 065
  3. PREDNISOLONE [Suspect]
     Route: 065
  4. SYNTHROID [Concomitant]
     Indication: HYPOTHYROIDISM
  5. VITAMINS [Concomitant]
     Indication: RHEUMATOID ARTHRITIS

REACTIONS (3)
  - Hip fracture [Unknown]
  - Fall [Unknown]
  - Ill-defined disorder [Unknown]
